FAERS Safety Report 6890748-1 (Version None)
Quarter: 2010Q3

REPORT INFORMATION
  Report Type: 
  Country: None (occurrence: None)
  Receive Date: 20100731
  Receipt Date: 20090318
  Transmission Date: 20110219
  Serious: Yes (Other)
  Sender: FDA-Public Use
  Company Number: US-PFIZER INC-2009162391

PATIENT
  Sex: Male
  Weight: 123.36 kg

DRUGS (5)
  1. LIPITOR [Suspect]
     Indication: HYPERLIPIDAEMIA
     Dosage: 20 MG, 1X/DAY
     Dates: start: 20081106, end: 20090113
  2. ATACAND [Concomitant]
     Indication: BLOOD PRESSURE
     Dosage: 16 MG, UNK
  3. HYDROCHLOROTHIAZIDE [Concomitant]
     Indication: BLOOD PRESSURE
     Dosage: 25 MG, UNK
  4. GEMFIBROZIL [Concomitant]
     Indication: HYPERLIPIDAEMIA
  5. NIASPAN [Concomitant]
     Indication: HYPERLIPIDAEMIA

REACTIONS (2)
  - BLOOD PRESSURE INCREASED [None]
  - HEADACHE [None]
